FAERS Safety Report 12732557 (Version 1)
Quarter: 2016Q3

REPORT INFORMATION
  Report Type: Spontaneous
  Country: SG (occurrence: SG)
  Receive Date: 20160912
  Receipt Date: 20160912
  Transmission Date: 20161109
  Serious: Yes (Hospitalization)
  Sender: FDA-Public Use
  Company Number: SG-CMP PHARMA-2016CMP00020

PATIENT
  Age: 41 Year
  Sex: Male

DRUGS (4)
  1. RIFAMPICIN [Concomitant]
     Active Substance: RIFAMPIN
     Indication: PULMONARY TUBERCULOSIS
     Route: 065
  2. ETHAMBUTOL [Concomitant]
     Active Substance: ETHAMBUTOL HYDROCHLORIDE
     Indication: PULMONARY TUBERCULOSIS
     Route: 065
  3. ISONIAZID. [Suspect]
     Active Substance: ISONIAZID
     Indication: PULMONARY TUBERCULOSIS
     Dosage: UNK
     Route: 065
  4. ISONIAZID. [Suspect]
     Active Substance: ISONIAZID
     Dosage: 1 BOTTLE OF TABLETS, ONCE
     Route: 048

REACTIONS (9)
  - Hypotension [None]
  - Status epilepticus [None]
  - Renal impairment [Recovered/Resolved]
  - Lactic acidosis [None]
  - Toxicity to various agents [Unknown]
  - Respiratory acidosis [Unknown]
  - Pyrexia [None]
  - Intentional overdose [Recovered/Resolved]
  - Metabolic acidosis [None]
